FAERS Safety Report 8815015 (Version 2)
Quarter: 2012Q4

REPORT INFORMATION
  Report Type: 
  Country: US (occurrence: US)
  Receive Date: 20120928
  Receipt Date: 20121023
  Transmission Date: 20130627
  Serious: Yes (Death)
  Sender: FDA-Public Use
  Company Number: US-GILEAD-2012-0061939

PATIENT
  Sex: Female

DRUGS (1)
  1. LETAIRIS [Suspect]
     Indication: PULMONARY HYPERTENSION
     Dosage: 10 mg, UNK
     Route: 048
     Dates: start: 20091211

REACTIONS (4)
  - Supraventricular tachycardia [Fatal]
  - Chronic obstructive pulmonary disease [Fatal]
  - Renal failure chronic [Fatal]
  - Pulmonary hypertension [Fatal]
